FAERS Safety Report 22847925 (Version 6)
Quarter: 2024Q3

REPORT INFORMATION
  Report Type: Report from Study
  Country: US (occurrence: US)
  Receive Date: 20230822
  Receipt Date: 20240710
  Transmission Date: 20241017
  Serious: No
  Sender: AMGEN
  Company Number: US-AMGEN-USASP2023145318

PATIENT
  Age: 43 Year
  Sex: Female

DRUGS (5)
  1. TAVNEOS [Suspect]
     Active Substance: AVACOPAN
     Indication: Granulomatosis with polyangiitis
     Dosage: 30 MILLIGRAM, BID ( 6 TOTAL 3 AT MORNING 3 AT EVENING )
     Route: 048
     Dates: start: 20220522
  2. TAVNEOS [Suspect]
     Active Substance: AVACOPAN
     Dosage: 20 MILLIGRAM, TID (TAKE 2 CAPSULES BY MOUTH 3 TIMES A DAY WITH FOOD)
     Route: 048
     Dates: start: 20220705
  3. TAVNEOS [Suspect]
     Active Substance: AVACOPAN
     Dosage: 30 MILLIGRAM, BID (TAKE 3 CAPSULES (30 MG) BY MOUTH TWICE DAILY WITH FOOD)
     Route: 048
  4. TAVNEOS [Suspect]
     Active Substance: AVACOPAN
     Dosage: 20 MILLIGRAM, TID (TAKE 2 CAPSULES BY MOUTH 3 TIMES A DAY WITH FOOD)
     Route: 048
  5. TAVNEOS [Suspect]
     Active Substance: AVACOPAN
     Dosage: 20 MILLIGRAM, TID (TAKE 2 CAPSULES BY MOUTH 3 TIMES A DAY WITH FOOD)
     Route: 048
     Dates: end: 20240704

REACTIONS (2)
  - Vaginal infection [Unknown]
  - Off label use [Unknown]

NARRATIVE: CASE EVENT DATE: 20220705
